FAERS Safety Report 15597932 (Version 1)
Quarter: 2018Q4

REPORT INFORMATION
  Report Type: Spontaneous
  Country: US (occurrence: US)
  Receive Date: 20181108
  Receipt Date: 20181108
  Transmission Date: 20190205
  Serious: No
  Sender: FDA-Public Use
  Company Number: US-MYLANLABS-2018M1077695

PATIENT
  Sex: Female
  Weight: 67 kg

DRUGS (1)
  1. LEVOTHYROXINE SODIUM TABLETS, USP [Suspect]
     Active Substance: LEVOTHYROXINE SODIUM
     Indication: HYPOTHYROIDISM
     Dosage: UNK
     Route: 048

REACTIONS (4)
  - Asthenia [Recovering/Resolving]
  - Memory impairment [Unknown]
  - Alopecia [Not Recovered/Not Resolved]
  - Pruritus [Recovered/Resolved]
